FAERS Safety Report 6414345-7 (Version None)
Quarter: 2009Q4

REPORT INFORMATION
  Report Type: 
  Country: None (occurrence: None)
  Receive Date: 20091021
  Receipt Date: 20090915
  Transmission Date: 20100525
  Serious: Yes (Other)
  Sender: FDA-Public Use
  Company Number: 2009-03863

PATIENT
  Age: 61 Year
  Sex: Female
  Weight: 60 kg

DRUGS (5)
  1. VELCADE [Suspect]
     Indication: DRUG USE FOR UNKNOWN INDICATION
  2. MELPHALAN [Concomitant]
  3. ATOVAQUONE [Concomitant]
  4. VALACYCLOVIR [Concomitant]
  5. OMEPRAZOLE [Concomitant]

REACTIONS (3)
  - ACUTE FEBRILE NEUTROPHILIC DERMATOSIS [None]
  - NEUROPATHY PERIPHERAL [None]
  - PYREXIA [None]
